FAERS Safety Report 5585337-5 (Version None)
Quarter: 2008Q1

REPORT INFORMATION
  Report Type: 
  Country: None (occurrence: None)
  Receive Date: 20080104
  Receipt Date: 20080104
  Transmission Date: 20080703
  Serious: Yes (Life-Threatening, Hospitalization)
  Sender: FDA-Public Use
  Company Number: None

PATIENT
  Age: 53 Year
  Sex: Male
  Weight: 100 kg

DRUGS (7)
  1. ZOMETA [Suspect]
     Indication: OSTEOPOROSIS
     Dosage: 4MG   Q 90 DAYS  IV
     Route: 042
     Dates: start: 20071024
  2. KEPPRA [Concomitant]
  3. DEXAMETHASONE TAB [Concomitant]
  4. TRILEPTAL [Concomitant]
  5. ZANTAC [Concomitant]
  6. MINOCYCLINE HCL [Concomitant]
  7. RESTORIL [Concomitant]

REACTIONS (19)
  - APHASIA [None]
  - BRAIN SCAN ABNORMAL [None]
  - CONSTIPATION [None]
  - DYSARTHRIA [None]
  - FACIAL PALSY [None]
  - FAECAL INCONTINENCE [None]
  - FEELING HOT [None]
  - INDURATION [None]
  - INFECTION [None]
  - PAIN [None]
  - PYREXIA [None]
  - RECTAL OBSTRUCTION [None]
  - SCROTAL ABSCESS [None]
  - SCROTAL PAIN [None]
  - SPEECH DISORDER [None]
  - SWELLING [None]
  - TACHYCARDIA [None]
  - TESTICULAR PAIN [None]
  - WOUND [None]
